FAERS Safety Report 7585567-7 (Version None)
Quarter: 2011Q2

REPORT INFORMATION
  Report Type: 
  Country: None (occurrence: None)
  Receive Date: 20110628
  Receipt Date: 20110628
  Transmission Date: 20111010
  Serious: Yes (Hospitalization)
  Sender: FDA-Public Use
  Company Number: None

PATIENT
  Sex: Female
  Weight: 78.6 kg

DRUGS (2)
  1. TACROLIMUS [Suspect]
     Indication: RENAL TRANSPLANT
     Dosage: 2-3MG (SANSOZ) BID PO PT GETTING SANDOZ UNTIL APRIL
     Route: 048
  2. TACROLIMUS [Suspect]
     Dosage: 7-8 MG (MYLAN) BID PO, NOT ACHIEVING LEVELS-REJECTION
     Route: 048

REACTIONS (3)
  - KIDNEY TRANSPLANT REJECTION [None]
  - PRODUCT QUALITY ISSUE [None]
  - PRODUCT SUBSTITUTION ISSUE [None]
